FAERS Safety Report 5115494-6 (Version None)
Quarter: 2006Q3

REPORT INFORMATION
  Report Type: 
  Country: None (occurrence: None)
  Receive Date: 20060927
  Receipt Date: 20060915
  Transmission Date: 20061208
  Serious: Yes (Hospitalization)
  Sender: FDA-Public Use
  Company Number: PHNR2006AU01259

PATIENT
  Age: 57 Year
  Sex: Male
  Weight: 76.1 kg

DRUGS (2)
  1. DEMAZIN SINUS [Concomitant]
     Indication: SEASONAL ALLERGY
  2. VOLTAREN [Suspect]
     Indication: GOUT
     Dates: start: 20060529

REACTIONS (8)
  - ABASIA [None]
  - CIRCULATORY COLLAPSE [None]
  - DIARRHOEA [None]
  - HYPERHIDROSIS [None]
  - HYPOTENSION [None]
  - NAUSEA [None]
  - SHOCK [None]
  - TREMOR [None]
